FAERS Safety Report 24382296 (Version 2)
Quarter: 2024Q4

REPORT INFORMATION
  Report Type: Spontaneous
  Country: US (occurrence: US)
  Receive Date: 20241001
  Receipt Date: 20241004
  Transmission Date: 20250115
  Serious: No
  Sender: ASTELLAS
  Company Number: US-ASTELLAS-2024-AER-008861

PATIENT
  Sex: Female

DRUGS (1)
  1. VEOZAH [Suspect]
     Active Substance: FEZOLINETANT
     Indication: Hot flush
     Route: 065
     Dates: start: 202409

REACTIONS (5)
  - Hot flush [Unknown]
  - Night sweats [Unknown]
  - Hyperhidrosis [Unknown]
  - Muscle disorder [Unknown]
  - Off label use [Unknown]
